FAERS Safety Report 14550712 (Version 1)
Quarter: 2018Q1

REPORT INFORMATION
  Report Type: Report from Study
  Country: US (occurrence: US)
  Receive Date: 20180219
  Receipt Date: 20180219
  Transmission Date: 20180509
  Serious: Yes (Other)
  Sender: FDA-Public Use
  Company Number: US-ROCHE-1703753

PATIENT
  Sex: Female
  Weight: 58.11 kg

DRUGS (2)
  1. LUCENTIS [Suspect]
     Active Substance: RANIBIZUMAB
     Indication: CHOROIDAL NEOVASCULARISATION
  2. LUCENTIS [Suspect]
     Active Substance: RANIBIZUMAB
     Indication: NEOVASCULAR AGE-RELATED MACULAR DEGENERATION
     Dosage: RIGHT EYE?ONGOING: YES
     Route: 050
     Dates: start: 2002

REACTIONS (4)
  - Visual impairment [Unknown]
  - Visual acuity reduced [Unknown]
  - Blindness unilateral [Not Recovered/Not Resolved]
  - Deafness unilateral [Unknown]
